FAERS Safety Report 23985143 (Version 1)
Quarter: 2024Q2

REPORT INFORMATION
  Report Type: Spontaneous
  Country: NL (occurrence: NL)
  Receive Date: 20240618
  Receipt Date: 20240618
  Transmission Date: 20240716
  Serious: Yes (Other)
  Sender: FDA-Public Use
  Company Number: NL-SUN PHARMACEUTICAL INDUSTRIES LTD-2024RR-452019

PATIENT
  Age: 51 Year
  Sex: Female
  Weight: 70 kg

DRUGS (3)
  1. PREGABALIN [Suspect]
     Active Substance: PREGABALIN
     Indication: Neuropathy peripheral
     Dosage: 1 DOSAGE FORM, BID
     Route: 065
     Dates: start: 20220915, end: 20240111
  2. CANNABIS SATIVA SUBSP. INDICA TOP [Suspect]
     Active Substance: CANNABIS SATIVA SUBSP. INDICA TOP
     Indication: Neuropathy peripheral
     Dosage: UNK
     Route: 065
     Dates: start: 20231222, end: 20240124
  3. TAMOXIFEN [Concomitant]
     Active Substance: TAMOXIFEN
     Indication: Product used for unknown indication
     Dosage: UNK
     Route: 065

REACTIONS (8)
  - Suicidal ideation [Recovering/Resolving]
  - Anxiety [Recovering/Resolving]
  - Panic reaction [Recovering/Resolving]
  - Insomnia [Recovered/Resolved]
  - Depressed mood [Recovering/Resolving]
  - Restlessness [Recovering/Resolving]
  - Sensory overload [Recovering/Resolving]
  - Confusional state [Recovering/Resolving]
